FAERS Safety Report 6377146-4 (Version None)
Quarter: 2009Q3

REPORT INFORMATION
  Report Type: 
  Country: None (occurrence: None)
  Receive Date: 20090925
  Receipt Date: 20090914
  Transmission Date: 20100115
  Serious: Yes (Death, Hospitalization)
  Sender: FDA-Public Use
  Company Number: JP-PFIZER INC-2009261092

PATIENT
  Age: 79 Year

DRUGS (7)
  1. CAMPTOSAR [Suspect]
     Indication: COLON CANCER
     Dosage: 260 MG
     Route: 041
     Dates: start: 20090708, end: 20090722
  2. FLUOROURACIL [Suspect]
     Indication: COLON CANCER
     Dosage: 700 MG
     Route: 040
     Dates: start: 20090708, end: 20090722
  3. FLUOROURACIL [Suspect]
     Dosage: 4000 MG D1-2
     Route: 041
     Dates: start: 20090708, end: 20090722
  4. CALCIUM LEVOFOLINATE [Concomitant]
     Indication: COLON CANCER
     Dosage: 350 MG
     Route: 041
     Dates: start: 20090708, end: 20090722
  5. KYTRIL [Concomitant]
     Indication: PREMEDICATION
     Dosage: 3 MG
     Route: 041
     Dates: start: 20090708, end: 20090722
  6. DEXAMETHASONE SODIUM PHOSPHATE [Concomitant]
     Indication: PREMEDICATION
     Dosage: 8 MG
     Route: 041
     Dates: start: 20090708, end: 20090722
  7. IMMUNE GLOBULIN INTRAVENOUS (HUMAN) [Concomitant]
     Indication: INFECTION
     Dosage: 5 G
     Route: 041
     Dates: start: 20090729, end: 20090731

REACTIONS (5)
  - DECREASED APPETITE [None]
  - LEUKOPENIA [None]
  - NEUTROPENIA [None]
  - PNEUMONIA [None]
  - THROMBOCYTOPENIA [None]
